FAERS Safety Report 21992217 (Version 2)
Quarter: 2023Q2

REPORT INFORMATION
  Report Type: Spontaneous
  Country: US (occurrence: None)
  Receive Date: 20230214
  Receipt Date: 20230414
  Transmission Date: 20230722
  Serious: No
  Sender: FDA-Public Use
  Company Number: 2023A024550

PATIENT
  Age: 20710 Day
  Sex: Male
  Weight: 189.6 kg

DRUGS (1)
  1. BYDUREON BCISE [Suspect]
     Active Substance: EXENATIDE
     Indication: Type 2 diabetes mellitus
     Route: 058
     Dates: start: 202009

REACTIONS (7)
  - Weight decreased [Not Recovered/Not Resolved]
  - Injection site haemorrhage [Unknown]
  - Drug dose omission by device [Recovered/Resolved]
  - Incorrect dose administered by device [Recovered/Resolved]
  - Wrong technique in device usage process [Recovered/Resolved]
  - Injection site discharge [Not Recovered/Not Resolved]
  - Device malfunction [Unknown]

NARRATIVE: CASE EVENT DATE: 20230127
